FAERS Safety Report 5679458-6 (Version None)
Quarter: 2008Q1

REPORT INFORMATION
  Report Type: 
  Country: None (occurrence: None)
  Receive Date: 20080325
  Receipt Date: 20080315
  Transmission Date: 20080703
  Serious: Yes (Congenital Anomaly)
  Sender: FDA-Public Use
  Company Number: FR-PFIZER INC-2007086063

PATIENT

DRUGS (3)
  1. XALATAN [Suspect]
     Dates: start: 20070320, end: 20070801
  2. LUMIGAN [Suspect]
     Dates: start: 20070801, end: 20071001
  3. TIMOLOL MALEATE [Suspect]

REACTIONS (2)
  - DRUG EXPOSURE DURING PREGNANCY [None]
  - HEART DISEASE CONGENITAL [None]
